FAERS Safety Report 8027724-1 (Version None)
Quarter: 2012Q1

REPORT INFORMATION
  Report Type: 
  Country: None (occurrence: None)
  Receive Date: 20120104
  Receipt Date: 20111219
  Transmission Date: 20120608
  Serious: Yes (Hospitalization)
  Sender: FDA-Public Use
  Company Number: LTI2011A00322

PATIENT
  Age: 68 Year
  Sex: Male

DRUGS (3)
  1. ACTOS [Suspect]
     Indication: TYPE 2 DIABETES MELLITUS
     Dosage: 15 MG (15 MG,1 IN 1 D) ORAL ; 15 MG (15 MG,1 IN 1 D),ORAL
     Route: 048
     Dates: start: 20110601
  2. ACTOS [Suspect]
     Indication: TYPE 2 DIABETES MELLITUS
     Dosage: 15 MG (15 MG,1 IN 1 D) ORAL ; 15 MG (15 MG,1 IN 1 D),ORAL
     Route: 048
     Dates: start: 19980101
  3. ASPIRIN [Concomitant]

REACTIONS (2)
  - BLADDER CANCER [None]
  - URINARY BLADDER POLYP [None]
